FAERS Safety Report 8246803-7 (Version None)
Quarter: 2012Q1

REPORT INFORMATION
  Report Type: 
  Country: None (occurrence: None)
  Receive Date: 20120330
  Receipt Date: 20120326
  Transmission Date: 20120608
  Serious: Yes (Disabling, Other)
  Sender: FDA-Public Use
  Company Number: US-PFIZER INC-2012039042

PATIENT
  Sex: Male
  Weight: 95.238 kg

DRUGS (9)
  1. LIPITOR [Concomitant]
     Dosage: UNK
  2. IMDUR [Concomitant]
     Dosage: UNK
  3. DEXAMETHASONE [Concomitant]
     Dosage: UNK
  4. NIASPAN [Concomitant]
     Dosage: UNK
  5. ACETYLSALICYLIC ACID [Concomitant]
     Dosage: UNK
  6. NORVASC [Concomitant]
     Dosage: UNK
  7. TOPROL-XL [Concomitant]
     Dosage: UNK
  8. CARDIZEM [Concomitant]
     Dosage: UNK
  9. NEURONTIN [Suspect]
     Indication: DIABETIC NEUROPATHY
     Dosage: UNK
     Dates: start: 20000101

REACTIONS (6)
  - VISUAL ACUITY REDUCED [None]
  - PANCREAS INFECTION [None]
  - PANCREATIC DISORDER [None]
  - COMA [None]
  - BLINDNESS [None]
  - GLAUCOMA [None]
